FAERS Safety Report 18389345 (Version 2)
Quarter: 2020Q4

REPORT INFORMATION
  Report Type: Spontaneous
  Country: US (occurrence: US)
  Receive Date: 20201015
  Receipt Date: 20201026
  Transmission Date: 20210114
  Serious: Yes (Other)
  Sender: FDA-Public Use
  Company Number: US-ADVANTICEHEALTH-2020-US-019888

PATIENT
  Age: 25 Year
  Sex: Female
  Weight: 142.88 kg

DRUGS (21)
  1. LIPITOR [Concomitant]
     Active Substance: ATORVASTATIN CALCIUM
  2. TIZANIDINE. [Concomitant]
     Active Substance: TIZANIDINE
  3. LYSTEDA [Concomitant]
     Active Substance: TRANEXAMIC ACID
  4. BENTYL [Concomitant]
     Active Substance: DICYCLOMINE HYDROCHLORIDE
  5. CYMBALTA [Concomitant]
     Active Substance: DULOXETINE HYDROCHLORIDE
  6. MULTIVITAMIN [Concomitant]
     Active Substance: VITAMINS
  7. LEVOTHYROXINE. [Concomitant]
     Active Substance: LEVOTHYROXINE
  8. ^LEOBYTRIC^ [Concomitant]
  9. VITAMIN D [Concomitant]
     Active Substance: VITAMIN D NOS
  10. FLONASE [Concomitant]
     Active Substance: FLUTICASONE PROPIONATE
  11. BENEFIX [Concomitant]
     Active Substance: COAGULATION FACTOR IX RECOMBINANT HUMAN\ISOPROPYL ALCOHOL
  12. GABAPENTIN. [Concomitant]
     Active Substance: GABAPENTIN
  13. CARDIZEM [Concomitant]
     Active Substance: DILTIAZEM HYDROCHLORIDE
  14. TOPROL XL [Concomitant]
     Active Substance: METOPROLOL SUCCINATE
  15. MAGNESIUM OXIDE. [Concomitant]
     Active Substance: MAGNESIUM OXIDE
  16. EMGALITY [Concomitant]
     Active Substance: GALCANEZUMAB-GNLM
  17. CRANBERRY SUPPLEMENT [Concomitant]
  18. UBRELVY [Concomitant]
     Active Substance: UBROGEPANT
  19. NEW SKIN BANDAGE [Suspect]
     Active Substance: BENZETHONIUM CHLORIDE
     Indication: WOUND TREATMENT
     Dosage: APPLIED TO SMALL CUTS
     Route: 061
     Dates: start: 20200922, end: 20200922
  20. RESCUE INHALER (UNSPECIFIED) [Concomitant]
  21. TOPAMAX [Concomitant]
     Active Substance: TOPIRAMATE

REACTIONS (3)
  - Erythema [Unknown]
  - Burning sensation [Not Recovered/Not Resolved]
  - Blister [Unknown]

NARRATIVE: CASE EVENT DATE: 20200922
